FAERS Safety Report 6233773-6 (Version None)
Quarter: 2009Q2

REPORT INFORMATION
  Report Type: 
  Country: None (occurrence: None)
  Receive Date: 20090615
  Receipt Date: 20090615
  Transmission Date: 20091009
  Serious: Yes (Hospitalization, Other)
  Sender: FDA-Public Use
  Company Number: None

PATIENT
  Sex: Male
  Weight: 122.7 kg

DRUGS (3)
  1. NABUMETONE [Suspect]
     Indication: OSTEOARTHRITIS
     Dosage: 750 MG 2X DAILY 047 APPROX. 3 YEARS
  2. DIVALPROEX SOD [Concomitant]
  3. TOPAMAX [Concomitant]

REACTIONS (10)
  - ARTHRITIS [None]
  - CONSTIPATION [None]
  - DIARRHOEA [None]
  - DISEASE RECURRENCE [None]
  - DIVERTICULUM [None]
  - DIZZINESS [None]
  - FLATULENCE [None]
  - PRURITUS [None]
  - RASH [None]
  - SKIN LESION [None]
